FAERS Safety Report 19054584 (Version 1)
Quarter: 2021Q1

REPORT INFORMATION
  Report Type: Report from Study
  Country: None (occurrence: DE)
  Receive Date: 20210325
  Receipt Date: 20210325
  Transmission Date: 20210420
  Serious: Yes (Hospitalization)
  Sender: FDA-Public Use
  Company Number: DE-ABBVIE-21K-062-3826434-00

PATIENT
  Age: 61 Year
  Sex: Male
  Weight: 115 kg

DRUGS (5)
  1. HYDROMORPHON [Concomitant]
     Active Substance: HYDROMORPHONE
     Route: 048
     Dates: start: 2017
  2. HUMIRA [Suspect]
     Active Substance: ADALIMUMAB
     Indication: PSORIASIS
     Route: 058
     Dates: start: 2018, end: 202002
  3. RAMIPRIL. [Concomitant]
     Active Substance: RAMIPRIL
     Indication: HYPERTENSION
     Route: 048
     Dates: start: 2011
  4. METFORMIN [Concomitant]
     Active Substance: METFORMIN HYDROCHLORIDE
     Indication: DIABETES MELLITUS
     Route: 048
     Dates: start: 2009
  5. HYDROMORPHON [Concomitant]
     Active Substance: HYDROMORPHONE
     Indication: PAIN
     Route: 048
     Dates: start: 2017

REACTIONS (2)
  - Intentional product misuse [Not Recovered/Not Resolved]
  - Orchitis noninfective [Recovered/Resolved]

NARRATIVE: CASE EVENT DATE: 202002
